FAERS Safety Report 10664632 (Version 1)
Quarter: 2014Q4

REPORT INFORMATION
  Report Type: Spontaneous
  Country: CA (occurrence: CA)
  Receive Date: 20141219
  Receipt Date: 20141219
  Transmission Date: 20150529
  Serious: Yes (Other)
  Sender: FDA-Public Use
  Company Number: CA-MYLANLABS-2014M1014998

PATIENT

DRUGS (8)
  1. OXYCODONE [Suspect]
     Active Substance: OXYCODONE
     Dosage: AS NEEDED (THIS WAS USED INFREQUENTLY))
     Route: 065
  2. OXYCODONE [Suspect]
     Active Substance: OXYCODONE
     Indication: COMPLEX REGIONAL PAIN SYNDROME
     Dosage: LONG-ACTING
     Route: 065
  3. KETAMINE [Concomitant]
     Active Substance: KETAMINE
     Route: 048
  4. PREGABALIN. [Suspect]
     Active Substance: PREGABALIN
     Indication: COMPLEX REGIONAL PAIN SYNDROME
     Route: 065
  5. AMITRIPTYLINE [Suspect]
     Active Substance: AMITRIPTYLINE
     Dosage: 150MG AT NIGHT
     Route: 065
  6. OXYCODONE [Suspect]
     Active Substance: OXYCODONE
     Indication: PROCEDURAL PAIN
     Dosage: LONG-ACTING
     Route: 065
  7. FENTANYL. [Suspect]
     Active Substance: FENTANYL
     Indication: COMPLEX REGIONAL PAIN SYNDROME
     Dosage: 25MICROG/HOUR EVERY 3 DAYS
     Route: 062
  8. FENTANYL. [Suspect]
     Active Substance: FENTANYL
     Indication: PROCEDURAL PAIN
     Dosage: 100MICROG/HOUR EVERY 3 DAYS
     Route: 062

REACTIONS (2)
  - Drug withdrawal syndrome [Unknown]
  - Weight increased [Unknown]
